FAERS Safety Report 8131989-5 (Version None)
Quarter: 2012Q1

REPORT INFORMATION
  Report Type: 
  Country: None (occurrence: None)
  Receive Date: 20120213
  Receipt Date: 20120206
  Transmission Date: 20120608
  Serious: Yes (Hospitalization)
  Sender: FDA-Public Use
  Company Number: IT-TEVA-321374ISR

PATIENT
  Sex: Male

DRUGS (2)
  1. RISPERIDONE [Suspect]
     Dosage: 4 MILLIGRAM;
     Route: 048
     Dates: start: 20070320, end: 20070328
  2. ETILTOX [Suspect]
     Dosage: 400 MILLIGRAM;
     Route: 048
     Dates: start: 20070320, end: 20070328

REACTIONS (2)
  - PRIAPISM [None]
  - THROMBOSIS CORPORA CAVERNOSA [None]
